FAERS Safety Report 8998431 (Version 1)
Quarter: 2013Q1

REPORT INFORMATION
  Report Type: Spontaneous
  Country: FR (occurrence: FR)
  Receive Date: 20130103
  Receipt Date: 20130103
  Transmission Date: 20140127
  Serious: Yes (Other)
  Sender: FDA-Public Use
  Company Number: FR-ROCHE-1174611

PATIENT
  Age: 70 Year
  Sex: Female

DRUGS (2)
  1. MABTHERA [Suspect]
     Indication: LYMPHOMA
     Route: 058
     Dates: start: 201106, end: 201209
  2. ZOMETA [Concomitant]
     Dosage: 3 ADMINISTRATIONS ON UNKNOWN DATES
     Route: 065

REACTIONS (2)
  - Erysipelas [Recovered/Resolved]
  - Atypical fibroxanthoma [Recovering/Resolving]
